FAERS Safety Report 11939335 (Version 1)
Quarter: 2016Q1

REPORT INFORMATION
  Report Type: Report from Study
  Country: US (occurrence: US)
  Receive Date: 20160122
  Receipt Date: 20160122
  Transmission Date: 20160526
  Serious: Yes (Hospitalization)
  Sender: FDA-Public Use
  Company Number: US-GILEAD-2016-0193698

PATIENT
  Age: 23 Year
  Sex: Male

DRUGS (4)
  1. AZTREONAM LYSINE [Suspect]
     Active Substance: AZTREONAM LYSINE
     Indication: CYSTIC FIBROSIS LUNG
  2. AZTREONAM LYSINE [Suspect]
     Active Substance: AZTREONAM LYSINE
     Indication: PSEUDOMONAS INFECTION
     Dosage: 75 MG, UNK
     Route: 055
     Dates: start: 20150504
  3. LUMACAFTOR [Concomitant]
     Dosage: 125 MG, UNK
     Route: 065
     Dates: start: 20151210
  4. LUMACAFTOR [Concomitant]
     Dosage: 200 MG, UNK
     Route: 048
     Dates: start: 20151210

REACTIONS (1)
  - Pulmonary function test decreased [Unknown]
